FAERS Safety Report 10397054 (Version 1)
Quarter: 2014Q3

REPORT INFORMATION
  Report Type: Spontaneous
  Country: US (occurrence: None)
  Receive Date: 20140819
  Receipt Date: 20140819
  Transmission Date: 20150326
  Serious: No
  Sender: FDA-Public Use
  Company Number: None

PATIENT
  Age: 28 Year
  Sex: Female
  Weight: 50.35 kg

DRUGS (1)
  1. HYOSCYAMINE SULFATE. [Suspect]
     Active Substance: HYOSCYAMINE SULFATE
     Indication: GASTROINTESTINAL PAIN
     Dosage: 1 TABLET AS NEEDED TAKEN BY MOUTH
     Route: 048
     Dates: start: 20140722, end: 20140722

REACTIONS (10)
  - Fear [None]
  - Anxiety [None]
  - Fatigue [None]
  - Tremor [None]
  - Crying [None]
  - Palpitations [None]
  - Headache [None]
  - Dizziness [None]
  - Panic attack [None]
  - Conversion disorder [None]

NARRATIVE: CASE EVENT DATE: 20140722
